FAERS Safety Report 12765918 (Version 2)
Quarter: 2016Q4

REPORT INFORMATION
  Report Type: Spontaneous
  Country: JP (occurrence: JP)
  Receive Date: 20160921
  Receipt Date: 20161201
  Transmission Date: 20170207
  Serious: Yes (Hospitalization)
  Sender: FDA-Public Use
  Company Number: PHJP2016JP026584

PATIENT
  Age: 71 Year
  Sex: Male

DRUGS (1)
  1. COSENTYX [Suspect]
     Active Substance: SECUKINUMAB
     Indication: PSORIASIS
     Dosage: 300 MG, UNK
     Route: 058
     Dates: start: 20160616, end: 20160811

REACTIONS (9)
  - Cellulitis [Recovered/Resolved]
  - Inflammatory marker increased [Unknown]
  - Erythema [Unknown]
  - Fungal test positive [Unknown]
  - Arthralgia [Unknown]
  - Feeling hot [Unknown]
  - Tinea pedis [Unknown]
  - Skin exfoliation [Unknown]
  - Peripheral swelling [Unknown]

NARRATIVE: CASE EVENT DATE: 20160811
